FAERS Safety Report 8963160 (Version 3)
Quarter: 2013Q2

REPORT INFORMATION
  Report Type: Report from Study
  Country: DE (occurrence: DE)
  Receive Date: 20121213
  Receipt Date: 20130617
  Transmission Date: 20140414
  Serious: Yes (Other)
  Sender: FDA-Public Use
  Company Number: PHHY2012DE092367

PATIENT
  Sex: Female

DRUGS (2)
  1. FTY 720 [Suspect]
     Indication: MULTIPLE SCLEROSIS
     Dosage: 0.5 MG, QD
     Route: 048
     Dates: start: 20110522
  2. CILEST [Concomitant]

REACTIONS (2)
  - Blood cholesterol increased [Recovered/Resolved]
  - Low density lipoprotein increased [Recovered/Resolved]
